FAERS Safety Report 4300152-8 (Version None)
Quarter: 2004Q1

REPORT INFORMATION
  Report Type: 
  Country: None (occurrence: None)
  Receive Date: 20040218
  Receipt Date: 20040130
  Transmission Date: 20041129
  Serious: Yes (Death, Life-Threatening, Hospitalization)
  Sender: FDA-Public Use
  Company Number: 200400640

PATIENT
  Age: 79 Year
  Sex: Male

DRUGS (9)
  1. BOTOX [Suspect]
     Indication: BLEPHAROSPASM
  2. EXELON [Concomitant]
  3. MODOPAR [Concomitant]
  4. REQUIP [Concomitant]
  5. DEROXAT [Concomitant]
  6. LORAZEPAM [Concomitant]
  7. HEPT-A-MYL [Concomitant]
  8. TRIVASTAL [Concomitant]
  9. TRANSIPEG [Concomitant]

REACTIONS (8)
  - CYANOSIS [None]
  - DISEASE RECURRENCE [None]
  - DYSPHAGIA [None]
  - DYSPNOEA [None]
  - GENERAL PHYSICAL HEALTH DETERIORATION [None]
  - LUNG DISORDER [None]
  - PNEUMONIA [None]
  - PULMONARY MASS [None]
